FAERS Safety Report 6822747-X (Version None)
Quarter: 2010Q2

REPORT INFORMATION
  Report Type: 
  Country: None (occurrence: None)
  Receive Date: 20100318
  Receipt Date: 20100318
  Transmission Date: 20101027
  Serious: Yes (Other)
  Sender: FDA-Public Use
  Company Number: None

PATIENT
  Age: 50 Year
  Sex: Female
  Weight: 80.2867 kg

DRUGS (1)
  1. SUPER COLLEGEN TYPE I AND II + C 6GM COLLOGEN + C NEOCELL [Suspect]
     Indication: SUPPLEMENTATION THERAPY
     Dosage: 2 3X DAY
     Dates: start: 20091201, end: 20100201

REACTIONS (1)
  - ARTHRALGIA [None]
